FAERS Safety Report 19395841 (Version 4)
Quarter: 2021Q3

REPORT INFORMATION
  Report Type: Report from Study
  Country: US (occurrence: US)
  Receive Date: 20210609
  Receipt Date: 20210930
  Transmission Date: 20211014
  Serious: Yes (Other)
  Sender: FDA-Public Use
  Company Number: US-SHIRE-US202013503

PATIENT
  Sex: Female

DRUGS (1)
  1. CUVITRU [Suspect]
     Active Substance: HUMAN IMMUNOGLOBULIN G
     Indication: PRIMARY IMMUNODEFICIENCY SYNDROME
     Dosage: 11 GRAM, 1/WEEK
     Route: 065

REACTIONS (20)
  - Suspected COVID-19 [Unknown]
  - Epistaxis [Unknown]
  - Chest pain [Unknown]
  - Injection site pain [Unknown]
  - Dehydration [Unknown]
  - Temperature intolerance [Unknown]
  - Abdominal pain [Unknown]
  - Adenoidal disorder [Unknown]
  - Blood immunoglobulin G decreased [Unknown]
  - Anxiety [Unknown]
  - Lymphadenopathy [Unknown]
  - Stress at work [Unknown]
  - Productive cough [Recovering/Resolving]
  - Pyrexia [Unknown]
  - Headache [Unknown]
  - Bipolar disorder [Unknown]
  - Sinusitis [Unknown]
  - Speech disorder [Unknown]
  - Illness [Unknown]
  - Needle issue [Unknown]
